FAERS Safety Report 11105996 (Version 1)
Quarter: 2015Q2

REPORT INFORMATION
  Report Type: Spontaneous
  Country: US (occurrence: None)
  Receive Date: 20150508
  Receipt Date: 20150508
  Transmission Date: 20150821
  Serious: Yes (Other)
  Sender: FDA-Public Use
  Company Number: 2015M1014200

PATIENT

DRUGS (2)
  1. IPRATROPIUM BROMIDE AND ALBUTEROL SULFATE [Suspect]
     Active Substance: ALBUTEROL SULFATE\IPRATROPIUM BROMIDE
     Indication: SPUTUM CULTURE
     Dosage: RESPIRATORY
     Dates: start: 2015, end: 2015
  2. SODIUM CHLORIDE. [Suspect]
     Active Substance: SODIUM CHLORIDE
     Dosage: RESPIRATORY
     Dates: start: 2015, end: 2015

REACTIONS (1)
  - Mycobacterium test positive [None]

NARRATIVE: CASE EVENT DATE: 20150226
